FAERS Safety Report 25587377 (Version 1)
Quarter: 2025Q3

REPORT INFORMATION
  Report Type: Spontaneous
  Country: EU (occurrence: EU)
  Receive Date: 20250721
  Receipt Date: 20250721
  Transmission Date: 20251020
  Serious: Yes (Life-Threatening, Hospitalization, Other)
  Sender: MYLAN
  Company Number: None

PATIENT
  Age: 18 Year
  Sex: Male

DRUGS (8)
  1. ACETAMINOPHEN [Suspect]
     Active Substance: ACETAMINOPHEN
     Indication: Product used for unknown indication
     Dosage: 7 GRAM, QD (PATIENT TOOK 6 G OF PARACETAMOL AT 12:30 AM AND 1 G AT 4:00 AM)
     Dates: start: 20250630, end: 20250630
  2. ACETAMINOPHEN [Suspect]
     Active Substance: ACETAMINOPHEN
     Dosage: 7 GRAM, QD (PATIENT TOOK 6 G OF PARACETAMOL AT 12:30 AM AND 1 G AT 4:00 AM)
     Route: 048
     Dates: start: 20250630, end: 20250630
  3. ACETAMINOPHEN [Suspect]
     Active Substance: ACETAMINOPHEN
     Dosage: 7 GRAM, QD (PATIENT TOOK 6 G OF PARACETAMOL AT 12:30 AM AND 1 G AT 4:00 AM)
     Route: 048
     Dates: start: 20250630, end: 20250630
  4. ACETAMINOPHEN [Suspect]
     Active Substance: ACETAMINOPHEN
     Dosage: 7 GRAM, QD (PATIENT TOOK 6 G OF PARACETAMOL AT 12:30 AM AND 1 G AT 4:00 AM)
     Dates: start: 20250630, end: 20250630
  5. CLARITHROMYCIN [Suspect]
     Active Substance: CLARITHROMYCIN
     Indication: Product used for unknown indication
     Dosage: 4 GRAM, QD (PATIENT TOOK 4 G OF CLARITHROMYCIN AT 2:30 AM)
     Dates: start: 20250630, end: 20250630
  6. CLARITHROMYCIN [Suspect]
     Active Substance: CLARITHROMYCIN
     Dosage: 4 GRAM, QD (PATIENT TOOK 4 G OF CLARITHROMYCIN AT 2:30 AM)
     Route: 048
     Dates: start: 20250630, end: 20250630
  7. CLARITHROMYCIN [Suspect]
     Active Substance: CLARITHROMYCIN
     Dosage: 4 GRAM, QD (PATIENT TOOK 4 G OF CLARITHROMYCIN AT 2:30 AM)
     Route: 048
     Dates: start: 20250630, end: 20250630
  8. CLARITHROMYCIN [Suspect]
     Active Substance: CLARITHROMYCIN
     Dosage: 4 GRAM, QD (PATIENT TOOK 4 G OF CLARITHROMYCIN AT 2:30 AM)
     Dates: start: 20250630, end: 20250630

REACTIONS (2)
  - Drug abuse [Recovered/Resolved]
  - Vomiting [Recovered/Resolved]

NARRATIVE: CASE EVENT DATE: 20250630
